FAERS Safety Report 5930343-1 (Version None)
Quarter: 2008Q4

REPORT INFORMATION
  Report Type: 
  Country: None (occurrence: None)
  Receive Date: 20081023
  Receipt Date: 20081017
  Transmission Date: 20090506
  Serious: Yes (Life-Threatening, Hospitalization)
  Sender: FDA-Public Use
  Company Number: POMP-1000170

PATIENT
  Age: 11 Month
  Sex: Female
  Weight: 8.4 kg

DRUGS (1)
  1. MYOZYME [Suspect]
     Indication: GLYCOGEN STORAGE DISEASE TYPE II
     Dosage: 200 MG, Q2W, INTRAVENOUS
     Route: 042
     Dates: start: 20071015, end: 20080513

REACTIONS (6)
  - BRONCHIAL OBSTRUCTION [None]
  - DYSPNOEA [None]
  - HYPERSENSITIVITY [None]
  - OXYGEN SATURATION DECREASED [None]
  - TACHYCARDIA [None]
  - TACHYPNOEA [None]
